FAERS Safety Report 23349084 (Version 1)
Quarter: 2023Q4

REPORT INFORMATION
  Report Type: Other
  Country: CN (occurrence: None)
  Receive Date: 20231229
  Receipt Date: 20231229
  Transmission Date: 20240109
  Serious: Yes (Other)
  Sender: FDA-Public Use
  Company Number: CN-ROCHE-3482214

PATIENT

DRUGS (6)
  1. BEVACIZUMAB [Suspect]
     Active Substance: BEVACIZUMAB
     Indication: Cervix carcinoma
     Route: 042
  2. PACLITAXEL [Suspect]
     Active Substance: PACLITAXEL
     Indication: Cervix carcinoma
     Dosage: 135- 175 MG/M2,  NMPA APPROVAL NO. H10980068
     Route: 042
  3. CISPLATIN [Suspect]
     Active Substance: CISPLATIN
     Indication: Cervix carcinoma
     Dosage: NMPA APPROVAL NO. H20040813
     Route: 041
  4. DIPHENHYDRAMINE [Concomitant]
     Active Substance: DIPHENHYDRAMINE
     Dosage: NMPA APPROVAL NO. H14022436
     Route: 030
  5. CIMETIDINE [Concomitant]
     Active Substance: CIMETIDINE
     Dosage: NMPA APPROVAL NO. H31020484
     Route: 042
  6. DEXAMETHASONE [Concomitant]
     Active Substance: DEXAMETHASONE
     Dosage: NMPA APPROVAL NO. H44024469,  ADMINISTERED AT 6H AND 12H, RESPECTIVELY
     Route: 048

REACTIONS (4)
  - Myelosuppression [Unknown]
  - Anorectal disorder [Unknown]
  - Bladder disorder [Unknown]
  - Skin reaction [Unknown]
